FAERS Safety Report 20826209 (Version 1)
Quarter: 2022Q2

REPORT INFORMATION
  Report Type: Spontaneous
  Country: RO (occurrence: RO)
  Receive Date: 20220513
  Receipt Date: 20220513
  Transmission Date: 20220720
  Serious: Yes (Other)
  Sender: FDA-Public Use
  Company Number: RO-AMGEN-ROUSP2022068889

PATIENT
  Age: 57 Year
  Sex: Female

DRUGS (7)
  1. OXALIPLATIN [Suspect]
     Active Substance: OXALIPLATIN
     Indication: Product used for unknown indication
     Dosage: UNK, START JUL-2020
     Route: 065
     Dates: end: 202010
  2. FLUOROURACIL [Suspect]
     Active Substance: FLUOROURACIL
     Indication: Colorectal cancer metastatic
     Dosage: UNK, START JUL-2020
     Route: 065
     Dates: end: 202105
  3. LEUCOVORIN [Suspect]
     Active Substance: LEUCOVORIN
     Indication: Colorectal cancer metastatic
     Dosage: UNK, START JUL-2020
     Route: 065
     Dates: end: 202010
  4. LEUCOVORIN [Suspect]
     Active Substance: LEUCOVORIN
     Indication: Colorectal cancer metastatic
     Dosage: UNK, START NOV-2020
     Route: 065
     Dates: end: 202105
  5. PANITUMUMAB [Suspect]
     Active Substance: PANITUMUMAB
     Indication: Colorectal cancer metastatic
     Dosage: UNK (REDUCING DOSE TO 80 PERCENT), START JUL-2020
     Route: 065
  6. PANITUMUMAB [Suspect]
     Active Substance: PANITUMUMAB
     Dosage: UNK (REDUCING DOSE TO 80 PERCENT) START 2022
     Route: 065
  7. NEBIVOLOL [Concomitant]
     Active Substance: NEBIVOLOL
     Indication: Essential hypertension
     Dosage: UNK
     Dates: start: 2020

REACTIONS (5)
  - Hypomagnesaemia [Unknown]
  - Therapy partial responder [Recovered/Resolved]
  - Skin toxicity [Unknown]
  - Peripheral sensory neuropathy [Unknown]
  - Diarrhoea [Unknown]

NARRATIVE: CASE EVENT DATE: 20200101
